FAERS Safety Report 20167480 (Version 1)
Quarter: 2021Q4

REPORT INFORMATION
  Report Type: Spontaneous
  Country: CN (occurrence: CN)
  Receive Date: 20211209
  Receipt Date: 20211209
  Transmission Date: 20220303
  Serious: Yes (Other)
  Sender: FDA-Public Use
  Company Number: CN-BAXTER-2021BAX038674

PATIENT
  Age: 75 Year
  Sex: Male
  Weight: 61 kg

DRUGS (13)
  1. CYCLOPHOSPHAMIDE [Suspect]
     Active Substance: CYCLOPHOSPHAMIDE
     Indication: Chemotherapy
     Dosage: CYCLOPHOSPHAMIDE FOR INJECTION 0.5G +0.9% SODIUM CHLORIDE INJECTION 100ML
     Route: 041
     Dates: start: 20211110, end: 20211110
  2. CYCLOPHOSPHAMIDE [Suspect]
     Active Substance: CYCLOPHOSPHAMIDE
     Dosage: CYCLOPHOSPHAMIDE FOR INJECTION 0.5G +0.9% SODIUM CHLORIDE INJECTION 100ML
     Route: 041
     Dates: start: 20211117, end: 20211117
  3. SODIUM CHLORIDE [Suspect]
     Active Substance: SODIUM CHLORIDE
     Indication: Medication dilution
     Dosage: CYCLOPHOSPHAMIDE FOR INJECTION 0.5G + 0.9% SODIUM CHLORIDE INJECTION 100ML
     Route: 041
     Dates: start: 20211110, end: 20211110
  4. SODIUM CHLORIDE [Suspect]
     Active Substance: SODIUM CHLORIDE
     Dosage: CYCLOPHOSPHAMIDE FOR INJECTION 0.5G +0.9% SODIUM CHLORIDE INJECTION 100ML
     Route: 041
     Dates: start: 20211117, end: 20211117
  5. SODIUM CHLORIDE [Suspect]
     Active Substance: SODIUM CHLORIDE
     Dosage: BORTEZOMIB FOR INJECTION (2.2 MG) +0.9% SODIUM CHLORIDE INJECTION 1ML
     Route: 058
     Dates: start: 20211110, end: 20211110
  6. SODIUM CHLORIDE [Suspect]
     Active Substance: SODIUM CHLORIDE
     Dosage: BORTEZOMIB FOR INJECTION (2.2 MG) + 0.9% SODIUM CHLORIDE INJECTION 1ML
     Route: 058
     Dates: start: 20211113, end: 20211113
  7. SODIUM CHLORIDE [Suspect]
     Active Substance: SODIUM CHLORIDE
     Dosage: BORTEZOMIB FOR INJECTION (2.2 MG) + 0.9% SODIUM CHLORIDE INJECTION 1ML
     Route: 058
     Dates: start: 20211117, end: 20211117
  8. SODIUM CHLORIDE [Suspect]
     Active Substance: SODIUM CHLORIDE
     Dosage: BORTEZOMIB FOR INJECTION (2.2 MG) + 0.9% SODIUM CHLORIDE INJECTION 1ML
     Route: 058
     Dates: start: 20211120, end: 20211120
  9. BORTEZOMIB [Suspect]
     Active Substance: BORTEZOMIB
     Indication: Chemotherapy
     Dosage: PRIOR DOSE
     Route: 065
  10. BORTEZOMIB [Suspect]
     Active Substance: BORTEZOMIB
     Dosage: BORTEZOMIB FOR INJECTION (2.2 MG) + 0.9% SODIUM CHLORIDE INJECTION 1ML
     Route: 058
     Dates: start: 20211110, end: 20211110
  11. BORTEZOMIB [Suspect]
     Active Substance: BORTEZOMIB
     Dosage: BORTEZOMIB FOR INJECTION (2.2 MG) + 0.9% SODIUM CHLORIDE INJECTION 1ML
     Route: 058
     Dates: start: 20211113, end: 20211113
  12. BORTEZOMIB [Suspect]
     Active Substance: BORTEZOMIB
     Dosage: BORTEZOMIB FOR INJECTION (2.2 MG) + 0.9% SODIUM CHLORIDE INJECTION 1ML
     Route: 058
     Dates: start: 20211117, end: 20211117
  13. BORTEZOMIB [Suspect]
     Active Substance: BORTEZOMIB
     Dosage: BORTEZOMIB FOR INJECTION (2.2 MG) + 0.9% SODIUM CHLORIDE INJECTION 1ML
     Route: 058
     Dates: start: 20211120, end: 20211120

REACTIONS (1)
  - Pancytopenia [Unknown]

NARRATIVE: CASE EVENT DATE: 20211123
